FAERS Safety Report 18044487 (Version 1)
Quarter: 2020Q3

REPORT INFORMATION
  Report Type: Spontaneous
  Country: US (occurrence: US)
  Receive Date: 20200720
  Receipt Date: 20200720
  Transmission Date: 20201103
  Serious: Yes (Other)
  Sender: FDA-Public Use
  Company Number: None

PATIENT
  Age: 67 Year
  Sex: Female
  Weight: 150 kg

DRUGS (9)
  1. NOREPHINEPHRINE DRIP [Concomitant]
     Dates: start: 20200712, end: 20200713
  2. REMDESIVIR. [Suspect]
     Active Substance: REMDESIVIR
     Indication: RESPIRATORY FAILURE
     Dosage: ?          OTHER FREQUENCY:ONCE;?
     Route: 041
     Dates: start: 20200713, end: 20200714
  3. CEFTRIAXONE. [Concomitant]
     Active Substance: CEFTRIAXONE
     Dates: start: 20200709
  4. PITRESSIN DRIP [Concomitant]
     Dates: start: 20200712, end: 20200714
  5. AZITHROMYCIN ANHYDROUS. [Concomitant]
     Active Substance: AZITHROMYCIN ANHYDROUS
     Dates: start: 20200709
  6. REMDESIVIR. [Suspect]
     Active Substance: REMDESIVIR
     Indication: COVID-19 PNEUMONIA
     Dosage: ?          OTHER FREQUENCY:ONCE;?
     Route: 041
     Dates: start: 20200713, end: 20200714
  7. PROPOFOL. [Concomitant]
     Active Substance: PROPOFOL
     Dates: start: 20200709
  8. ATORVASTAN [Concomitant]
     Active Substance: ATORVASTATIN CALCIUM
     Dates: start: 20200710
  9. FENTANYL DRIP [Concomitant]
     Dates: start: 20200712, end: 20200716

REACTIONS (2)
  - Acute kidney injury [None]
  - Liver function test increased [None]

NARRATIVE: CASE EVENT DATE: 20200713
